FAERS Safety Report 15839211 (Version 1)
Quarter: 2019Q1

REPORT INFORMATION
  Report Type: Spontaneous
  Country: US (occurrence: US)
  Receive Date: 20190117
  Receipt Date: 20190117
  Transmission Date: 20190417
  Serious: Yes (Life-Threatening, Other)
  Sender: FDA-Public Use
  Company Number: US-TEVA-2019-US-999595

PATIENT
  Sex: Male

DRUGS (4)
  1. AMIODARONE [Suspect]
     Active Substance: AMIODARONE
     Indication: ATRIAL FIBRILLATION
  2. CORDARONE [Suspect]
     Active Substance: AMIODARONE HYDROCHLORIDE
     Indication: ATRIAL FIBRILLATION
     Route: 065
  3. AMIODARONE WYETH [Suspect]
     Active Substance: AMIODARONE
     Indication: ATRIAL FIBRILLATION
  4. PACERONE [Suspect]
     Active Substance: AMIODARONE HYDROCHLORIDE
     Indication: ATRIAL FIBRILLATION
     Route: 065

REACTIONS (11)
  - Thyroid disorder [Unknown]
  - Renal injury [Unknown]
  - Product prescribing error [Unknown]
  - Optic neuropathy [Unknown]
  - Coordination abnormal [Unknown]
  - Impaired quality of life [Unknown]
  - Blindness [Unknown]
  - Dizziness [Unknown]
  - Asthenia [Unknown]
  - Product use in unapproved indication [Unknown]
  - Adverse drug reaction [Unknown]
